FAERS Safety Report 20629091 (Version 2)
Quarter: 2022Q2

REPORT INFORMATION
  Report Type: Report from Study
  Country: US (occurrence: None)
  Receive Date: 20220323
  Receipt Date: 20220406
  Transmission Date: 20220720
  Serious: Yes (Hospitalization)
  Sender: FDA-Public Use
  Company Number: US-Eisai Medical Research-EC-2022-111025

PATIENT
  Age: 60 Year
  Sex: Male

DRUGS (5)
  1. LENVIMA [Suspect]
     Active Substance: LENVATINIB
     Indication: Renal cancer
     Route: 048
     Dates: start: 202111, end: 20220131
  2. LENVIMA [Suspect]
     Active Substance: LENVATINIB
     Indication: Renal cell carcinoma
  3. LENVIMA [Suspect]
     Active Substance: LENVATINIB
     Indication: Metastases to lung
  4. LENVIMA [Suspect]
     Active Substance: LENVATINIB
     Indication: Metastases to bone marrow
  5. KEYTRUDA [Concomitant]
     Active Substance: PEMBROLIZUMAB

REACTIONS (5)
  - Deep vein thrombosis [Recovered/Resolved]
  - Renal impairment [Recovered/Resolved]
  - Platelet count decreased [Recovering/Resolving]
  - Haemoptysis [Recovered/Resolved]
  - Gingival bleeding [Recovered/Resolved]

NARRATIVE: CASE EVENT DATE: 20220124
